FAERS Safety Report 23398823 (Version 1)
Quarter: 2024Q1

REPORT INFORMATION
  Report Type: Spontaneous
  Country: US (occurrence: US)
  Receive Date: 20240112
  Receipt Date: 20240112
  Transmission Date: 20240410
  Serious: Yes (Other)
  Sender: FDA-Public Use
  Company Number: US-MLMSERVICE-20240105-4756929-1

PATIENT
  Age: 26 Year
  Sex: Male

DRUGS (3)
  1. FENTANYL CITRATE [Suspect]
     Active Substance: FENTANYL CITRATE
     Dosage: 2 GM DAILY FOR MANY MONTHS
     Route: 042
  2. METHAMPHETAMINE HYDROCHLORIDE [Concomitant]
     Active Substance: METHAMPHETAMINE HYDROCHLORIDE
     Dosage: UNK
  3. COCAINE [Concomitant]
     Active Substance: COCAINE
     Dosage: 30 MG

REACTIONS (2)
  - Drug use disorder [Unknown]
  - Drug withdrawal syndrome [Unknown]
